FAERS Safety Report 13331861 (Version 1)
Quarter: 2017Q1

REPORT INFORMATION
  Report Type: Spontaneous
  Country: US (occurrence: US)
  Receive Date: 20170314
  Receipt Date: 20170314
  Transmission Date: 20170428
  Serious: No
  Sender: FDA-Public Use
  Company Number: US-JNJFOC-20170204940

PATIENT
  Sex: Male
  Weight: 10.89 kg

DRUGS (1)
  1. INFANTS TYLENOL [Suspect]
     Active Substance: ACETAMINOPHEN
     Indication: PRODUCT USED FOR UNKNOWN INDICATION
     Dosage: 5ML (1ST DOSE) HALF A DOSE (2ND DOSE), 2 HOURS BETWEEN EACH DOSE
     Route: 065

REACTIONS (1)
  - Extra dose administered [Unknown]
